FAERS Safety Report 12558918 (Version 1)
Quarter: 2016Q3

REPORT INFORMATION
  Report Type: Spontaneous
  Country: DE (occurrence: DE)
  Receive Date: 20160715
  Receipt Date: 20160715
  Transmission Date: 20161109
  Serious: Yes (Life-Threatening, Hospitalization, Other)
  Sender: FDA-Public Use
  Company Number: DE-BRISTOL-MYERS SQUIBB COMPANY-BMS-2016-050585

PATIENT
  Age: 77 Year
  Sex: Female
  Weight: 85 kg

DRUGS (1)
  1. ELIQUIS [Suspect]
     Active Substance: APIXABAN
     Indication: CEREBROVASCULAR ACCIDENT PROPHYLAXIS
     Dosage: 2.5 MG, BID
     Route: 065

REACTIONS (5)
  - Surgery [Unknown]
  - Transfusion [Unknown]
  - Spontaneous haemorrhage [Recovering/Resolving]
  - Prescribed underdose [Unknown]
  - Aneurysm [Recovering/Resolving]

NARRATIVE: CASE EVENT DATE: 20160619
